FAERS Safety Report 17757662 (Version 1)
Quarter: 2020Q2

REPORT INFORMATION
  Report Type: Spontaneous
  Country: US (occurrence: US)
  Receive Date: 20200507
  Receipt Date: 20200507
  Transmission Date: 20200714
  Serious: No
  Sender: FDA-Public Use
  Company Number: US-ELI_LILLY_AND_COMPANY-US202004003304

PATIENT
  Age: 22 Year
  Sex: Female

DRUGS (1)
  1. EMGALITY [Suspect]
     Active Substance: GALCANEZUMAB-GNLM
     Indication: MIGRAINE
     Dosage: 120 MG, SINGLE
     Route: 058
     Dates: start: 20200128

REACTIONS (6)
  - Skin discolouration [Unknown]
  - Pain in extremity [Unknown]
  - Product dose omission [Recovered/Resolved]
  - Mast cell activation syndrome [Unknown]
  - Injection site urticaria [Recovered/Resolved]
  - Drug hypersensitivity [Unknown]

NARRATIVE: CASE EVENT DATE: 202002
